FAERS Safety Report 21026671 (Version 1)
Quarter: 2022Q2

REPORT INFORMATION
  Report Type: Spontaneous
  Country: US (occurrence: US)
  Receive Date: 20220630
  Receipt Date: 20220630
  Transmission Date: 20220721
  Serious: Yes (Other)
  Sender: FDA-Public Use
  Company Number: US-SA-SAC20220628002090

PATIENT
  Age: 46 Year
  Sex: Female
  Weight: 62.596 kg

DRUGS (1)
  1. AUBAGIO [Suspect]
     Active Substance: TERIFLUNOMIDE
     Indication: Multiple sclerosis
     Dosage: 7MG, QD
     Route: 048
     Dates: start: 20190107

REACTIONS (3)
  - Bipolar disorder [Unknown]
  - Product use issue [Unknown]
  - Product prescribing issue [Unknown]
